FAERS Safety Report 14000906 (Version 3)
Quarter: 2018Q1

REPORT INFORMATION
  Report Type: Report from Study
  Country: US (occurrence: US)
  Receive Date: 20170922
  Receipt Date: 20180219
  Transmission Date: 20180508
  Serious: Yes (Hospitalization, Other)
  Sender: FDA-Public Use
  Company Number: US-ALEXION PHARMACEUTICALS INC.-A201710185

PATIENT
  Age: 26 Year
  Sex: Female

DRUGS (5)
  1. SOLIRIS [Suspect]
     Active Substance: ECULIZUMAB
     Indication: PAROXYSMAL NOCTURNAL HAEMOGLOBINURIA
     Dosage: 600 MG, QW
     Route: 042
     Dates: start: 20170728
  2. ZANTAC [Concomitant]
     Active Substance: RANITIDINE HYDROCHLORIDE
     Indication: PRODUCT USED FOR UNKNOWN INDICATION
     Dosage: 150 MG, BID
     Route: 048
  3. SOLIRIS [Suspect]
     Active Substance: ECULIZUMAB
     Dosage: 900 MG, Q2W
     Route: 042
     Dates: start: 20170908
  4. LOVENOX [Concomitant]
     Active Substance: ENOXAPARIN SODIUM
     Indication: PORTAL VEIN THROMBOSIS
     Dosage: 1 MG/KG, BID
     Route: 058
  5. FLAGYL [Concomitant]
     Active Substance: METRONIDAZOLE\METRONIDAZOLE HYDROCHLORIDE
     Indication: PRODUCT USED FOR UNKNOWN INDICATION
     Dosage: 500 MG, Q8H
     Route: 048

REACTIONS (20)
  - Pyelonephritis [Unknown]
  - Intra-abdominal fluid collection [Unknown]
  - Mean cell haemoglobin increased [Unknown]
  - Night sweats [Unknown]
  - White blood cell count decreased [Unknown]
  - Blood bilirubin increased [Unknown]
  - Herpes simplex [Unknown]
  - Mean cell volume increased [Unknown]
  - Blood albumin decreased [Unknown]
  - Blood creatinine decreased [Unknown]
  - HELLP syndrome [Unknown]
  - Exposure during pregnancy [Recovered/Resolved]
  - Red blood cell count decreased [Unknown]
  - Haematocrit decreased [Unknown]
  - Haemolysis [Unknown]
  - Red cell distribution width increased [Unknown]
  - Haemoglobin decreased [Unknown]
  - Hydronephrosis [Unknown]
  - Afterbirth pain [Unknown]
  - Abdominal pain [Unknown]

NARRATIVE: CASE EVENT DATE: 20170825
